FAERS Safety Report 24943243 (Version 1)
Quarter: 2025Q1

REPORT INFORMATION
  Report Type: Report from Study
  Country: AR (occurrence: AR)
  Receive Date: 20250207
  Receipt Date: 20250207
  Transmission Date: 20250409
  Serious: Yes (Death)
  Sender: JOHNSON AND JOHNSON
  Company Number: AR-JNJFOC-20250206656

PATIENT
  Age: 68 Year
  Sex: Female
  Weight: 52 kg

DRUGS (1)
  1. SIMPONI [Suspect]
     Active Substance: GOLIMUMAB
     Indication: Rheumatoid arthritis
     Route: 041

REACTIONS (1)
  - Urinary tract infection [Fatal]

NARRATIVE: CASE EVENT DATE: 20240925
